FAERS Safety Report 18199331 (Version 1)
Quarter: 2020Q3

REPORT INFORMATION
  Report Type: Report from Study
  Country: US (occurrence: US)
  Receive Date: 20200826
  Receipt Date: 20200826
  Transmission Date: 20201103
  Serious: Yes (Other)
  Sender: FDA-Public Use
  Company Number: US-BAYER-2020-084362

PATIENT
  Age: 61 Year
  Sex: Male

DRUGS (3)
  1. LISINOPRIL. [Concomitant]
     Active Substance: LISINOPRIL
  2. STIVARGA [Suspect]
     Active Substance: REGORAFENIB
     Indication: COLORECTAL CANCER
     Dosage: DAILY DOSE 40 MG
     Route: 048
  3. STIVARGA [Suspect]
     Active Substance: REGORAFENIB
     Indication: COLORECTAL CANCER
     Dosage: DAILY DOSE 160 MG
     Route: 048
     Dates: start: 202001

REACTIONS (10)
  - Blood pressure increased [Recovering/Resolving]
  - Decreased appetite [Recovering/Resolving]
  - Dysphonia [Recovering/Resolving]
  - Neuropathy peripheral [None]
  - Food craving [None]
  - Fatigue [Recovering/Resolving]
  - Anaemia [None]
  - Somnolence [Recovering/Resolving]
  - Diarrhoea [Not Recovered/Not Resolved]
  - Constipation [None]

NARRATIVE: CASE EVENT DATE: 202008
